FAERS Safety Report 13392547 (Version 1)
Quarter: 2017Q1

REPORT INFORMATION
  Report Type: Spontaneous
  Country: CA (occurrence: CA)
  Receive Date: 20170331
  Receipt Date: 20170331
  Transmission Date: 20170429
  Serious: Yes (Life-Threatening, Hospitalization)
  Sender: FDA-Public Use
  Company Number: CA-TEVA-754466ACC

PATIENT
  Age: 60 Year
  Sex: Male
  Weight: 69 kg

DRUGS (14)
  1. ASA [Concomitant]
     Active Substance: ASPIRIN
  2. ZOFRAN [Concomitant]
     Active Substance: ONDANSETRON HYDROCHLORIDE
  3. ETOPOSIDE INJECTION [Suspect]
     Active Substance: ETOPOSIDE
     Indication: LUNG SQUAMOUS CELL CARCINOMA STAGE III
     Dosage: 90 MILLIGRAM DAILY;
     Route: 042
  4. ARTHROTEC [Concomitant]
     Active Substance: DICLOFENAC SODIUM\MISOPROSTOL
  5. CIPRALEX [Concomitant]
     Active Substance: ESCITALOPRAM OXALATE
  6. DEXAMETHASONE (ORAL) [Concomitant]
     Active Substance: DEXAMETHASONE
  7. ELAVIL [Concomitant]
     Active Substance: AMITRIPTYLINE HYDROCHLORIDE
  8. MORPHINE [Concomitant]
     Active Substance: MORPHINE
  9. TYLENOL WITH CODEINE [Concomitant]
     Active Substance: ACETAMINOPHEN\CODEINE PHOSPHATE
  10. ATIVAN [Concomitant]
     Active Substance: LORAZEPAM
  11. EMEND [Concomitant]
     Active Substance: APREPITANT
  12. CISPLATIN INJECTION [Suspect]
     Active Substance: CISPLATIN
     Indication: LUNG SQUAMOUS CELL CARCINOMA STAGE III
     Dosage: 87 MILLIGRAM DAILY;
     Route: 042
  13. LIPITOR [Concomitant]
     Active Substance: ATORVASTATIN CALCIUM
  14. MAXERAN-10 (10MG TABLET) [Concomitant]

REACTIONS (6)
  - Hypoaesthesia [Recovering/Resolving]
  - Fatigue [Recovering/Resolving]
  - Computerised tomogram abnormal [Recovering/Resolving]
  - Cerebral infarction [Recovering/Resolving]
  - Hemiparesis [Recovering/Resolving]
  - Hemiplegia [Recovering/Resolving]
